FAERS Safety Report 6136156-2 (Version None)
Quarter: 2009Q1

REPORT INFORMATION
  Report Type: 
  Country: None (occurrence: None)
  Receive Date: 20090330
  Receipt Date: 20090317
  Transmission Date: 20090719
  Serious: Yes (Other)
  Sender: FDA-Public Use
  Company Number: US-ROCHE-552276

PATIENT
  Sex: Female
  Weight: 79.4 kg

DRUGS (3)
  1. ACCUTANE [Suspect]
     Route: 048
     Dates: start: 20000406, end: 20000720
  2. ACCUTANE [Suspect]
     Route: 048
     Dates: start: 20000721, end: 20000731
  3. ACCUTANE [Suspect]
     Route: 048
     Dates: start: 20000801, end: 20000924

REACTIONS (10)
  - ANXIETY [None]
  - ARTHRALGIA [None]
  - COLITIS ULCERATIVE [None]
  - DEPRESSION [None]
  - DRY EYE [None]
  - INFLAMMATORY BOWEL DISEASE [None]
  - LIP DRY [None]
  - MYALGIA [None]
  - NASAL DRYNESS [None]
  - VISUAL IMPAIRMENT [None]
